FAERS Safety Report 9859948 (Version 1)
Quarter: 2014Q1

REPORT INFORMATION
  Report Type: Spontaneous
  Country: FR (occurrence: FR)
  Receive Date: 20140131
  Receipt Date: 20140131
  Transmission Date: 20141002
  Serious: Yes (Other)
  Sender: FDA-Public Use
  Company Number: FR-GILEAD-2014-0093208

PATIENT
  Age: 54 Year
  Sex: Female

DRUGS (3)
  1. EVIPLERA [Suspect]
     Indication: HIV INFECTION
     Dosage: 1 DF, UNK
     Route: 048
     Dates: start: 20130409, end: 20131202
  2. ATRIPLA [Concomitant]
     Indication: HIV INFECTION
     Dosage: UNK
     Route: 065
     Dates: start: 20120207, end: 20130409
  3. ATRIPLA [Concomitant]
     Dosage: UNK
     Route: 065
     Dates: start: 20101130, end: 20120103

REACTIONS (1)
  - Migraine [Recovered/Resolved]
